FAERS Safety Report 8519280-6 (Version None)
Quarter: 2012Q3

REPORT INFORMATION
  Report Type: 
  Country: None (occurrence: None)
  Receive Date: 20120718
  Receipt Date: 20120704
  Transmission Date: 20120928
  Serious: Yes (Hospitalization)
  Sender: FDA-Public Use
  Company Number: SE-ELI_LILLY_AND_COMPANY-SE201207002519

PATIENT
  Age: 63 Year
  Sex: Female

DRUGS (13)
  1. LAKTULOS [Concomitant]
  2. HYDROXOCOBALAMIN [Concomitant]
     Dosage: 1 MG, UNK
  3. FOLIC ACID [Concomitant]
     Dosage: 5 MG, UNK
  4. ATENOLOL [Concomitant]
  5. SYMBICORT [Concomitant]
  6. ZOPIKLON [Concomitant]
  7. ASPIRIN [Concomitant]
     Dosage: 75 MG, UNK
  8. SPIRONOLACTONE [Concomitant]
  9. ZYPREXA [Suspect]
     Indication: NEUROSIS
     Dosage: 30 MG, QD
     Route: 048
  10. PROPAVAN [Concomitant]
     Dosage: 25 MG, UNK
  11. FERROUS SULFATE TAB [Concomitant]
     Dosage: 100 MG, UNK
  12. SPIRIVA [Concomitant]
  13. FUROSEMIDE [Concomitant]
     Dosage: 40 MG, UNK

REACTIONS (4)
  - FALL [None]
  - OVERDOSE [None]
  - OFF LABEL USE [None]
  - CONFUSIONAL STATE [None]
